FAERS Safety Report 8337380-0 (Version None)
Quarter: 2012Q2

REPORT INFORMATION
  Report Type: 
  Country: None (occurrence: None)
  Receive Date: 20120502
  Receipt Date: 20120430
  Transmission Date: 20120825
  Serious: Yes (Hospitalization, Other)
  Sender: FDA-Public Use
  Company Number: ADR-2011-11611

PATIENT
  Age: 12 Year
  Sex: Male

DRUGS (1)
  1. BACLOFEN INTRATHECAL (BACLOFEN INJECTION 20000MCG/ML [Suspect]
     Indication: CEREBRAL PALSY
     Dosage: 631.6 MCG, DAILY

REACTIONS (4)
  - MEDICAL DEVICE COMPLICATION [None]
  - HYPERTONIA [None]
  - IRRITABILITY [None]
  - ACTIVITIES OF DAILY LIVING IMPAIRED [None]
